FAERS Safety Report 20952772 (Version 2)
Quarter: 2022Q2

REPORT INFORMATION
  Report Type: Spontaneous
  Country: US (occurrence: US)
  Receive Date: 20220613
  Receipt Date: 20220627
  Transmission Date: 20220721
  Serious: No
  Sender: FDA-Public Use
  Company Number: US-BRISTOL-MYERS SQUIBB COMPANY-2022-054677

PATIENT
  Age: 85 Year
  Sex: Male
  Weight: 90.72 kg

DRUGS (1)
  1. REVLIMID [Suspect]
     Active Substance: LENALIDOMIDE
     Indication: Monoclonal gammopathy
     Dosage: FREQ: DAYS 1-14, EVERY 21 DAYS
     Route: 048
     Dates: start: 20220528

REACTIONS (6)
  - Asthenia [Unknown]
  - Pain in extremity [Unknown]
  - Fatigue [Unknown]
  - Red blood cell count decreased [Unknown]
  - Product dose omission issue [Unknown]
  - Intentional product use issue [Unknown]
